FAERS Safety Report 7384510-3 (Version None)
Quarter: 2011Q1

REPORT INFORMATION
  Report Type: 
  Country: None (occurrence: None)
  Receive Date: 20110322
  Receipt Date: 20110309
  Transmission Date: 20110831
  Serious: Yes (Hospitalization, Other)
  Sender: FDA-Public Use
  Company Number: 018998

PATIENT
  Sex: Male
  Weight: 80 kg

DRUGS (10)
  1. LEVOCOMP [Concomitant]
  2. NEUPRO [Suspect]
     Indication: PARKINSON'S DISEASE
     Dosage: 6,8,4,10 MG QD
     Dates: start: 20070501, end: 20070501
  3. NEUPRO [Suspect]
     Indication: PARKINSON'S DISEASE
     Dosage: 6,8,4,10 MG QD
     Dates: start: 20070501, end: 20080101
  4. NEUPRO [Suspect]
     Indication: PARKINSON'S DISEASE
     Dosage: 6,8,4,10 MG QD
     Dates: start: 20080205, end: 20080421
  5. NEUPRO [Suspect]
     Indication: PARKINSON'S DISEASE
     Dosage: 6,8,4,10 MG QD
     Dates: start: 20080422, end: 20090519
  6. NEUPRO [Suspect]
     Indication: PARKINSON'S DISEASE
     Dosage: 6,8,4,10 MG QD
     Dates: start: 20070501, end: 20070501
  7. NEUPRO [Suspect]
     Indication: PARKINSON'S DISEASE
     Dosage: 6,8,4,10 MG QD
     Dates: start: 20070423, end: 20070430
  8. NEUPRO [Suspect]
     Indication: PARKINSON'S DISEASE
     Dosage: 6,8,4,10 MG QD
     Dates: start: 20080102, end: 20080204
  9. STALEVO 100 [Concomitant]
  10. MADOPAR [Concomitant]

REACTIONS (4)
  - PARKINSON'S DISEASE [None]
  - CONDITION AGGRAVATED [None]
  - DRUG EFFECT DECREASED [None]
  - TREATMENT NONCOMPLIANCE [None]
